FAERS Safety Report 19871701 (Version 2)
Quarter: 2022Q4

REPORT INFORMATION
  Report Type: Spontaneous
  Country: US (occurrence: US)
  Receive Date: 20210923
  Receipt Date: 20221017
  Transmission Date: 20230113
  Serious: No
  Sender: FDA-Public Use
  Company Number: US-CELLTRION INC.-2021US000478

PATIENT

DRUGS (1)
  1. INFLECTRA [Suspect]
     Active Substance: INFLIXIMAB-DYYB
     Indication: Crohn^s disease
     Dosage: DOSE UNKNOWN VIA INFUSION EVERY 8 WEEKS
     Route: 065

REACTIONS (5)
  - Weight increased [Unknown]
  - Abdominal discomfort [Unknown]
  - Symptom recurrence [Unknown]
  - Stress [Unknown]
  - Gastrooesophageal reflux disease [Unknown]
